APPROVED DRUG PRODUCT: MEMANTINE HYDROCHLORIDE
Active Ingredient: MEMANTINE HYDROCHLORIDE
Strength: 10MG
Dosage Form/Route: TABLET;ORAL
Application: A079225 | Product #002
Applicant: RISING PHARMA HOLDINGS INC
Approved: Jan 30, 2015 | RLD: No | RS: No | Type: DISCN